FAERS Safety Report 11063964 (Version 4)
Quarter: 2016Q1

REPORT INFORMATION
  Report Type: Report from Study
  Country: US (occurrence: US)
  Receive Date: 20150424
  Receipt Date: 20160127
  Transmission Date: 20160525
  Serious: Yes (Other)
  Sender: FDA-Public Use
  Company Number: US-SA-2015SA028124

PATIENT
  Age: 69 Year
  Sex: Female
  Weight: 58.9 kg

DRUGS (5)
  1. AMLODIPINE/BENAZEPRIL [Concomitant]
     Indication: BLOOD PRESSURE MANAGEMENT
     Dosage: 5-10 MG 1 CAPSULE DAILY
     Dates: start: 2000
  2. VESICARE [Concomitant]
     Active Substance: SOLIFENACIN SUCCINATE
     Indication: URINARY TRACT DISORDER
     Dosage: 1 DAILY
     Dates: start: 2005
  3. ZONISAMIDE. [Concomitant]
     Active Substance: ZONISAMIDE
     Indication: SEIZURE
     Dosage: 3 DAILY?STRENGTH 100 MG
     Dates: start: 2010
  4. AUBAGIO [Suspect]
     Active Substance: TERIFLUNOMIDE
     Indication: MULTIPLE SCLEROSIS
     Route: 048
     Dates: start: 20150221
  5. AUBAGIO [Suspect]
     Active Substance: TERIFLUNOMIDE
     Indication: MULTIPLE SCLEROSIS
     Route: 048
     Dates: start: 2015

REACTIONS (6)
  - Surgery [Unknown]
  - Unevaluable event [Unknown]
  - Arthralgia [Unknown]
  - Pain in extremity [Unknown]
  - Chronic throat clearing [Unknown]
  - Productive cough [Not Recovered/Not Resolved]

NARRATIVE: CASE EVENT DATE: 2015
